FAERS Safety Report 4725034-9 (Version None)
Quarter: 2005Q3

REPORT INFORMATION
  Report Type: 
  Country: None (occurrence: None)
  Receive Date: 20050722
  Receipt Date: 20050712
  Transmission Date: 20060218
  Serious: Yes (Life-Threatening, Disabling)
  Sender: FDA-Public Use
  Company Number: GXKR2005US01316

PATIENT
  Age: 20 Year
  Sex: Male

DRUGS (1)
  1. ISONIAZID [Suspect]
     Indication: SUICIDE ATTEMPT
     Dosage: OVERDOSE OF 9 - 12 G

REACTIONS (16)
  - APRAXIA [None]
  - BRAIN DAMAGE [None]
  - COGNITIVE DISORDER [None]
  - CONVULSION [None]
  - DEMENTIA [None]
  - DRUG TOXICITY [None]
  - ENCEPHALOPATHY [None]
  - INTENTIONAL MISUSE [None]
  - LEARNING DISORDER [None]
  - OVERDOSE [None]
  - PERSONALITY CHANGE [None]
  - POSTURING [None]
  - PUPIL FIXED [None]
  - RETROGRADE AMNESIA [None]
  - SPEECH DISORDER [None]
  - SUICIDE ATTEMPT [None]
